FAERS Safety Report 12721906 (Version 1)
Quarter: 2016Q3

REPORT INFORMATION
  Report Type: Spontaneous
  Country: JP (occurrence: JP)
  Receive Date: 20160907
  Receipt Date: 20160907
  Transmission Date: 20161109
  Serious: Yes (Other)
  Sender: FDA-Public Use
  Company Number: JP-MYLANLABS-2016M1037363

PATIENT

DRUGS (1)
  1. CARBOPLATIN MYLAN [Suspect]
     Active Substance: CARBOPLATIN
     Indication: PRODUCT USED FOR UNKNOWN INDICATION
     Dosage: ABOUT 550 MG
     Route: 065

REACTIONS (3)
  - Blood potassium increased [Unknown]
  - Blood sodium decreased [Unknown]
  - Adrenal insufficiency [Unknown]
